FAERS Safety Report 4378654-8 (Version None)
Quarter: 2004Q2

REPORT INFORMATION
  Report Type: 
  Country: None (occurrence: None)
  Receive Date: 20040610
  Receipt Date: 20040603
  Transmission Date: 20050107
  Serious: Yes (Hospitalization, Other)
  Sender: FDA-Public Use
  Company Number: FRWYE799403JUN04

PATIENT
  Age: 71 Year
  Sex: Female

DRUGS (6)
  1. RAPAMUNE [Suspect]
     Indication: PROPHYLAXIS AGAINST TRANSPLANT REJECTION
     Dosage: 2 MG 1X PER 1 DAY
     Route: 048
     Dates: start: 20030402, end: 20030422
  2. NEORAL [Suspect]
     Indication: PROPHYLAXIS AGAINST TRANSPLANT REJECTION
     Dosage: 0.05 G 2X PER 2 DAY
     Route: 048
     Dates: start: 19950125, end: 20030422
  3. ATENOLOL [Concomitant]
  4. ALLOPURINOL [Concomitant]
  5. EUPRESSYL (URAPIDIL) [Concomitant]
  6. ZESTRIL [Concomitant]

REACTIONS (5)
  - ALVEOLITIS [None]
  - DRUG LEVEL INCREASED [None]
  - IMMUNOSUPPRESSANT DRUG LEVEL INCREASED [None]
  - LYMPHOCYTOSIS [None]
  - PNEUMONITIS [None]
